FAERS Safety Report 12412426 (Version 8)
Quarter: 2020Q1

REPORT INFORMATION
  Report Type: Spontaneous
  Country: FR (occurrence: FR)
  Receive Date: 20160527
  Receipt Date: 20200318
  Transmission Date: 20200409
  Serious: Yes (Disabling, Other)
  Sender: FDA-Public Use
  Company Number: FR-ABBVIE-16P-056-1637150-00

PATIENT
  Sex: Male
  Weight: 3.5 kg

DRUGS (1)
  1. DEPAKINE CHRONO [Suspect]
     Active Substance: VALPROATE SODIUM
     Indication: MATERNAL EXPOSURE TIMING UNSPECIFIED
     Route: 064

REACTIONS (18)
  - Disability [Not Recovered/Not Resolved]
  - Emotional disorder [Not Recovered/Not Resolved]
  - Ill-defined disorder [Unknown]
  - Foetal anticonvulsant syndrome [Not Recovered/Not Resolved]
  - Bronchitis [Unknown]
  - Visual impairment [Unknown]
  - Fine motor skill dysfunction [Unknown]
  - Disturbance in attention [Unknown]
  - Dysmorphism [Unknown]
  - Foot deformity [Unknown]
  - Intellectual disability [Unknown]
  - Educational problem [Unknown]
  - Learning disorder [Unknown]
  - Migraine [Not Recovered/Not Resolved]
  - Anxiety [Not Recovered/Not Resolved]
  - Foetal exposure during pregnancy [Unknown]
  - Thinking abnormal [Not Recovered/Not Resolved]
  - Psychomotor hyperactivity [Not Recovered/Not Resolved]

NARRATIVE: CASE EVENT DATE: 2004
